FAERS Safety Report 17959219 (Version 1)
Quarter: 2020Q2

REPORT INFORMATION
  Report Type: Spontaneous
  Country: NL (occurrence: NL)
  Receive Date: 20200630
  Receipt Date: 20200630
  Transmission Date: 20200714
  Serious: Yes (Disabling, Other)
  Sender: FDA-Public Use
  Company Number: NL-AUROBINDO-AUR-APL-2020-031169

PATIENT
  Sex: Male
  Weight: 90 kg

DRUGS (1)
  1. LORAZEPAM 1 MG TABLETS [Suspect]
     Active Substance: LORAZEPAM
     Indication: BURNOUT SYNDROME
     Dosage: 3 MG
     Route: 065
     Dates: start: 201604

REACTIONS (1)
  - Depressed level of consciousness [Not Recovered/Not Resolved]
